FAERS Safety Report 21492421 (Version 3)
Quarter: 2023Q4

REPORT INFORMATION
  Report Type: Spontaneous
  Country: US (occurrence: US)
  Receive Date: 20221021
  Receipt Date: 20231009
  Transmission Date: 20240110
  Serious: No
  Sender: FDA-Public Use
  Company Number: US-SA-SAC20221017001288

PATIENT
  Age: 10 Year
  Sex: Male
  Weight: 53.5 kg

DRUGS (8)
  1. DUPIXENT [Suspect]
     Active Substance: DUPILUMAB
     Indication: Dermatitis atopic
     Dosage: 200 MG, QOW
     Route: 058
     Dates: start: 20220418
  2. DUPIXENT [Suspect]
     Active Substance: DUPILUMAB
     Indication: Rhinitis
  3. DUPIXENT [Suspect]
     Active Substance: DUPILUMAB
     Indication: Immunodeficiency
  4. DUPIXENT [Suspect]
     Active Substance: DUPILUMAB
     Indication: Dermatitis atopic
     Dosage: 200 MG, QOW
     Route: 058
     Dates: start: 202204
  5. DUPIXENT [Suspect]
     Active Substance: DUPILUMAB
     Indication: Rhinitis
  6. DUPIXENT [Suspect]
     Active Substance: DUPILUMAB
     Indication: Immunodeficiency
  7. METHYLPHENIDATE [Concomitant]
     Active Substance: METHYLPHENIDATE
     Dosage: UNK
  8. ZYRTEC [Concomitant]
     Active Substance: CETIRIZINE HYDROCHLORIDE
     Dosage: UNK

REACTIONS (6)
  - Inflammation [Unknown]
  - Pruritus [Unknown]
  - Eczema [Unknown]
  - Swelling [Recovered/Resolved]
  - Rash [Recovering/Resolving]
  - Product use in unapproved indication [Unknown]

NARRATIVE: CASE EVENT DATE: 20220828
